FAERS Safety Report 5006598-7 (Version None)
Quarter: 2006Q2

REPORT INFORMATION
  Report Type: 
  Country: None (occurrence: None)
  Receive Date: 20060519
  Receipt Date: 20060510
  Transmission Date: 20061013
  Serious: Yes (Life-Threatening)
  Sender: FDA-Public Use
  Company Number: CEATOX: 5827

PATIENT
  Age: 31 Year
  Sex: Female

DRUGS (3)
  1. AMOXIL [Suspect]
     Indication: SUICIDE ATTEMPT
     Route: 065
     Dates: start: 20060410, end: 20060410
  2. DICLOFENAC POTASSIUM [Suspect]
  3. CARBAMAZEPINE [Suspect]

REACTIONS (3)
  - DYSARTHRIA [None]
  - INTENTIONAL OVERDOSE [None]
  - SUICIDE ATTEMPT [None]
